FAERS Safety Report 5199426-0 (Version None)
Quarter: 2006Q4

REPORT INFORMATION
  Report Type: 
  Country: None (occurrence: None)
  Receive Date: 20061016
  Receipt Date: 20060711
  Transmission Date: 20070319
  Serious: No
  Sender: FDA-Public Use
  Company Number: 2006SP002664

PATIENT
  Age: 70 Year
  Sex: Male
  Weight: 54.4316 kg

DRUGS (1)
  1. LUNESTA [Suspect]
     Indication: INITIAL INSOMNIA
     Dosage: 1 MG;HS;ORAL
     Route: 048
     Dates: start: 20060701

REACTIONS (2)
  - DYSGEUSIA [None]
  - SOMNOLENCE [None]
